FAERS Safety Report 6509837 (Version 2)
Quarter: 2014Q1

REPORT INFORMATION
  Report Type: Spontaneous
  Country: US (occurrence: None)
  Receive Date: 20071106
  Receipt Date: 20130315
  Transmission Date: 20141002
  Serious: Yes (Other)
  Sender: FDA-Public Use
  Company Number: US-JNJFOC-20061006400

PATIENT
  Age: 76 Year
  Sex: Female
  Weight: 63.5 kg

DRUGS (8)
  1. MOTRIN [Suspect]
     Indication: PRODUCT USED FOR UNKNOWN INDICATION
  2. ALEVE [Suspect]
     Indication: PAIN
     Dosage: 440-660MG DAILY FOR A ^COUPLE OF YEARS^
     Dates: end: 20061006
  3. ATENOLOL (ATENOLOL) [Concomitant]
  4. MIACALCIN [Concomitant]
  5. ACCUPRIL [Concomitant]
  6. NORVASC [Concomitant]
  7. PRAVACHOL [Concomitant]
  8. FUROSEMIDE (FUROSEMIDE) [Concomitant]

REACTIONS (1)
  - Haematochezia [None]
